FAERS Safety Report 5972489-8 (Version None)
Quarter: 2008Q4

REPORT INFORMATION
  Report Type: 
  Country: None (occurrence: None)
  Receive Date: 20081126
  Receipt Date: 20081126
  Transmission Date: 20090506
  Serious: Yes (Hospitalization, Other)
  Sender: FDA-Public Use
  Company Number: None

PATIENT
  Sex: Female
  Weight: 100.6985 kg

DRUGS (15)
  1. CHANTIX [Suspect]
     Indication: SMOKING CESSATION THERAPY
     Dosage: 0.5MG, QD THEN BID, 047
     Dates: start: 20080926, end: 20081002
  2. CHANTIX [Suspect]
     Indication: SMOKING CESSATION THERAPY
     Dosage: 1.0MG, BID, 047
     Dates: start: 20081003, end: 20081011
  3. RISPERDAL [Concomitant]
  4. DEPAKOTE ER [Concomitant]
  5. CELEXA [Concomitant]
  6. LITHIUM CARBONATE [Concomitant]
  7. KLONOPIN [Concomitant]
  8. ARTANE [Concomitant]
  9. TRAZODONE HCL [Concomitant]
  10. METHADONE HCL [Concomitant]
  11. DETROL [Concomitant]
  12. OMEPRAZOLE [Concomitant]
  13. TYLENOL (CAPLET) [Concomitant]
  14. SIMVASTATIN [Concomitant]
  15. SENNA [Concomitant]

REACTIONS (9)
  - AMNESIA [None]
  - CONFUSIONAL STATE [None]
  - DEPRESSION [None]
  - DISORIENTATION [None]
  - FALL [None]
  - RESTLESSNESS [None]
  - SUICIDAL IDEATION [None]
  - TACHYPHRENIA [None]
  - THERAPEUTIC AGENT TOXICITY [None]
